FAERS Safety Report 23762505 (Version 1)
Quarter: 2024Q2

REPORT INFORMATION
  Report Type: Spontaneous
  Country: DE (occurrence: DE)
  Receive Date: 20240419
  Receipt Date: 20240419
  Transmission Date: 20240716
  Serious: Yes (Death)
  Sender: FDA-Public Use
  Company Number: DE-002147023-NVSC2024DE083360

PATIENT

DRUGS (2)
  1. PLUVICTO [Suspect]
     Active Substance: LUTETIUM LU-177 VIPIVOTIDE TETRAXETAN
     Indication: Product used for unknown indication
     Dosage: 7400 UNK
     Route: 065
     Dates: start: 20240130, end: 20240130
  2. PLUVICTO [Suspect]
     Active Substance: LUTETIUM LU-177 VIPIVOTIDE TETRAXETAN
     Dosage: 7400 UNK
     Route: 065
     Dates: start: 20240326, end: 20240326

REACTIONS (1)
  - Death [Fatal]

NARRATIVE: CASE EVENT DATE: 20240418
